FAERS Safety Report 11749405 (Version 4)
Quarter: 2019Q1

REPORT INFORMATION
  Report Type: Spontaneous
  Country: US (occurrence: US)
  Receive Date: 20151118
  Receipt Date: 20190201
  Transmission Date: 20190417
  Serious: No
  Sender: FDA-Public Use
  Company Number: US-PFIZER INC-2015378328

PATIENT
  Sex: Female
  Weight: 58.9 kg

DRUGS (10)
  1. METOPROLOL TARTRATE. [Suspect]
     Active Substance: METOPROLOL TARTRATE
     Dosage: UNK
  2. MIDRIN [Suspect]
     Active Substance: ACETAMINOPHEN\DICHLORALPHENAZONE\ISOMETHEPTENE
     Dosage: UNK
  3. ADVAIR HFA [Suspect]
     Active Substance: FLUTICASONE PROPIONATE\SALMETEROL XINAFOATE
     Dosage: UNK
  4. PHENOBARBITAL. [Suspect]
     Active Substance: PHENOBARBITAL
     Dosage: UNK
  5. LIPITOR [Suspect]
     Active Substance: ATORVASTATIN CALCIUM
     Dosage: UNK
  6. PROPOXYPHENE. [Suspect]
     Active Substance: PROPOXYPHENE
     Dosage: UNK
  7. HYDROCODONE [Suspect]
     Active Substance: HYDROCODONE
     Dosage: UNK
  8. NEUPRO [Suspect]
     Active Substance: ROTIGOTINE
     Dosage: UNK
  9. FLECTOR [Suspect]
     Active Substance: DICLOFENAC EPOLAMINE
     Dosage: UNK
  10. CODEINE [Suspect]
     Active Substance: CODEINE
     Dosage: UNK

REACTIONS (1)
  - Drug hypersensitivity [Unknown]
